FAERS Safety Report 16529947 (Version 1)
Quarter: 2019Q3

REPORT INFORMATION
  Report Type: Other
  Country: PT (occurrence: PT)
  Receive Date: 20190704
  Receipt Date: 20190704
  Transmission Date: 20191004
  Serious: Yes (Hospitalization)
  Sender: FDA-Public Use
  Company Number: PT-GUARDIAN DRUG COMPANY-2070354

PATIENT
  Age: 15 Year
  Sex: Male

DRUGS (1)
  1. CHILDRENS IBUPROFEN [Suspect]
     Active Substance: IBUPROFEN
     Indication: FOOT FRACTURE
     Route: 065

REACTIONS (1)
  - Meningitis aseptic [Recovered/Resolved]
